FAERS Safety Report 12001023 (Version 1)
Quarter: 2016Q1

REPORT INFORMATION
  Report Type: Spontaneous
  Country: BR (occurrence: BR)
  Receive Date: 20160204
  Receipt Date: 20160204
  Transmission Date: 20160526
  Serious: Yes (Other)
  Sender: FDA-Public Use
  Company Number: BR-SA-2016SA018564

PATIENT
  Sex: Female

DRUGS (1)
  1. LANTUS [Suspect]
     Active Substance: INSULIN GLARGINE
     Route: 065

REACTIONS (4)
  - Fall [Unknown]
  - Loss of consciousness [Unknown]
  - Tendon rupture [Unknown]
  - Dysgeusia [Unknown]

NARRATIVE: CASE EVENT DATE: 201507
